FAERS Safety Report 18313063 (Version 2)
Quarter: 2020Q4

REPORT INFORMATION
  Report Type: Spontaneous
  Country: JP (occurrence: JP)
  Receive Date: 20200925
  Receipt Date: 20201006
  Transmission Date: 20210113
  Serious: Yes (Death, Other)
  Sender: FDA-Public Use
  Company Number: JP-EISAI MEDICAL RESEARCH-EC-2020-081093

PATIENT
  Sex: Female

DRUGS (2)
  1. LENVATINIB [Suspect]
     Active Substance: LENVATINIB
     Dosage: DOSE AND FREQUENCY UNKNOWN
     Route: 048
  2. LENVATINIB [Suspect]
     Active Substance: LENVATINIB
     Indication: THYROID CANCER
     Dosage: DOSE AND FREQUENCY UNKNOWN
     Route: 048

REACTIONS (8)
  - Device related infection [Unknown]
  - Tracheal fistula [Not Recovered/Not Resolved]
  - Tracheal ulcer [Not Recovered/Not Resolved]
  - Carotid artery aneurysm [Unknown]
  - Device occlusion [Unknown]
  - Tumour necrosis [Unknown]
  - Sepsis [Fatal]
  - Cerebral infarction [Unknown]
